FAERS Safety Report 10011442 (Version 1)
Quarter: 2014Q1

REPORT INFORMATION
  Report Type: Spontaneous
  Country: US (occurrence: None)
  Receive Date: 20140311
  Receipt Date: 20140311
  Transmission Date: 20141002
  Serious: Yes (Death, Other)
  Sender: FDA-Public Use
  Company Number: ADR-2014UNK033

PATIENT
  Age: 36 Year
  Sex: Male
  Weight: 105.24 kg

DRUGS (11)
  1. MEPROBAMATE [Suspect]
  2. FENTANYL [Concomitant]
  3. PROMETHAZINE [Concomitant]
  4. MITAZAPINE [Concomitant]
  5. ACETAMINOPHEN W/HYDROCODONE [Concomitant]
  6. FENTANYL [Suspect]
     Indication: PRODUCT USED FOR UNKNOWN INDICATION
  7. PROMETHAZINE [Suspect]
  8. MIRTAZAPINE [Suspect]
  9. ACETAMINOPHEN W/HYDROCODONE [Suspect]
  10. CARISOPRODOL [Suspect]
  11. MEPROBAMATE [Suspect]

REACTIONS (10)
  - Drug abuse [None]
  - Toxicity to various agents [None]
  - Cardiomegaly [None]
  - Left ventricular hypertrophy [None]
  - Hypertensive cardiomyopathy [None]
  - Pneumonia [None]
  - Contusion [None]
  - Excoriation [None]
  - Pulmonary oedema [None]
  - Pulmonary congestion [None]
